FAERS Safety Report 5518656-9 (Version None)
Quarter: 2007Q4

REPORT INFORMATION
  Report Type: 
  Country: None (occurrence: None)
  Receive Date: 20071113
  Receipt Date: 20071025
  Transmission Date: 20080405
  Serious: Yes (Life-Threatening, Hospitalization, Other)
  Sender: FDA-Public Use
  Company Number: 2005-10-0179

PATIENT
  Age: 14 Year
  Sex: Female
  Weight: 74 kg

DRUGS (17)
  1. POSACONAZOLE [Suspect]
     Indication: MUCORMYCOSIS
     Dosage: 200 MG;PO
     Route: 048
     Dates: start: 20050930, end: 20050930
  2. VORICONAZOLE (VORICONAZOLE) [Suspect]
     Indication: ASPERGILLOSIS
     Dosage: 300 MCG;IV
     Route: 042
     Dates: start: 20050915, end: 20050929
  3. OMEPRAZOLE [Suspect]
     Indication: NAUSEA
     Dosage: PO
     Route: 048
     Dates: start: 20050917
  4. OMEPRAZOLE [Suspect]
     Indication: VOMITING
     Dosage: PO
     Route: 048
     Dates: start: 20050917
  5. FORTUM [Concomitant]
  6. TARGOCID [Concomitant]
  7. CASPOFUNGIN ACETATE [Concomitant]
  8. ATARAX [Concomitant]
  9. POLARAMINE [Concomitant]
  10. PRIMPERAN INJ [Concomitant]
  11. LEUPROLIDE ACETATE [Concomitant]
  12. MYCOSTATIN [Concomitant]
  13. SILOMAT /00096702/ [Concomitant]
  14. AMBISOME [Concomitant]
  15. PIPERACILLIN SODIUM W/TAZOBACTAM [Concomitant]
  16. VANCOMYCIN HCL [Concomitant]
  17. ONDANSETRON [Concomitant]

REACTIONS (11)
  - ANXIETY [None]
  - CARDIAC ARREST [None]
  - ELECTROCARDIOGRAM QT PROLONGED [None]
  - HYPOMAGNESAEMIA [None]
  - MALAISE [None]
  - OVERDOSE [None]
  - PYREXIA [None]
  - THROMBOCYTOPENIA [None]
  - TORSADE DE POINTES [None]
  - VENTRICULAR FIBRILLATION [None]
  - VOMITING [None]
